FAERS Safety Report 8005844-5 (Version None)
Quarter: 2011Q4

REPORT INFORMATION
  Report Type: 
  Country: None (occurrence: None)
  Receive Date: 20111223
  Receipt Date: 20111214
  Transmission Date: 20120403
  Serious: Yes (Other)
  Sender: FDA-Public Use
  Company Number: JP-ASTRAZENECA-2011SE76365

PATIENT
  Age: 28 Year
  Sex: Female

DRUGS (3)
  1. DIAZEPAM [Concomitant]
     Dosage: DOSE UNKNOWN
     Route: 065
  2. ROPIVACAINE HYDROCHLORIDE [Suspect]
     Dosage: DOSE UNKNWON
     Route: 008
  3. MAGNESIUM SULFATE HYDRATE [Concomitant]
     Dosage: DOSE UNKNOWN
     Route: 065

REACTIONS (2)
  - TOXICITY TO VARIOUS AGENTS [None]
  - ECLAMPSIA [None]
